FAERS Safety Report 9846569 (Version 6)
Quarter: 2014Q2

REPORT INFORMATION
  Report Type: Spontaneous
  Country: ES (occurrence: ES)
  Receive Date: 20140127
  Receipt Date: 20140408
  Transmission Date: 20141212
  Serious: Yes (Hospitalization, Other)
  Sender: FDA-Public Use
  Company Number: PHHY2014ES003009

PATIENT
  Sex: Female

DRUGS (15)
  1. SANDOSTATIN LAR [Suspect]
     Dosage: 30 MG, EVERY 20 DAYS
  2. SANDOSTATIN LAR [Suspect]
     Dosage: 60 MG, EVERY 21 DAYS
  3. SANDOSTATIN LAR [Suspect]
     Dosage: 30 MG, EVERY 21 DAYS
  4. INSULIN [Concomitant]
     Dosage: UNK UKN, UNK
  5. FUROSEMIDE [Concomitant]
     Dosage: 40 MG, UNK
  6. SIMVASTATIN [Concomitant]
     Dosage: 20 MG, UNK
  7. SOGILEN [Concomitant]
     Dosage: 1 MG, UNK
  8. OXCARBAZEPINE [Concomitant]
     Dosage: UNK UKN, UNK
  9. DOMPERIDONE [Concomitant]
     Dosage: 10 MG, UNK
  10. ACETYLSALICYLIC ACID [Concomitant]
     Dosage: 300 IU, UNK
  11. BISOPROLOL [Concomitant]
     Dosage: 10 MG, UNK
  12. ASTUDAL [Concomitant]
     Dosage: 10 MG, UNK
  13. COAPROVEL [Concomitant]
     Dosage: 300/25 IU
  14. EUTIROX [Concomitant]
     Dosage: 175 IU, UNK
  15. SANDOSTATIN LAR [Suspect]
     Indication: ACROMEGALY
     Dosage: 60 MG, QMO (MONTHLY)

REACTIONS (13)
  - Renal failure [Not Recovered/Not Resolved]
  - Brain mass [Recovering/Resolving]
  - Intracranial pressure increased [Not Recovered/Not Resolved]
  - Condition aggravated [Not Recovered/Not Resolved]
  - Drug intolerance [Unknown]
  - Feeling abnormal [Not Recovered/Not Resolved]
  - Bone disorder [Unknown]
  - Blood growth hormone increased [Not Recovered/Not Resolved]
  - Insulin-like growth factor increased [Not Recovered/Not Resolved]
  - Nausea [Recovering/Resolving]
  - Malaise [Not Recovered/Not Resolved]
  - Vomiting [Recovering/Resolving]
  - Dizziness [Not Recovered/Not Resolved]
